FAERS Safety Report 8262412-8 (Version None)
Quarter: 2012Q2

REPORT INFORMATION
  Report Type: 
  Country: None (occurrence: None)
  Receive Date: 20120405
  Receipt Date: 20120328
  Transmission Date: 20120825
  Serious: Yes (Other)
  Sender: FDA-Public Use
  Company Number: JP-PFIZER INC-2012078833

PATIENT
  Age: 56 Year
  Sex: Male

DRUGS (1)
  1. HYDROCORTISONE [Suspect]
     Dosage: 20 MG/DAY

REACTIONS (1)
  - DIABETES INSIPIDUS [None]
